FAERS Safety Report 21129294 (Version 1)
Quarter: 2022Q3

REPORT INFORMATION
  Report Type: Other
  Country: CA (occurrence: CA)
  Receive Date: 20220725
  Receipt Date: 20220725
  Transmission Date: 20221027
  Serious: Yes (Other)
  Sender: FDA-Public Use
  Company Number: CA-CELLTRION INC.-2022CA011766

PATIENT

DRUGS (9)
  1. RITUXIMAB [Suspect]
     Active Substance: RITUXIMAB
     Indication: Rheumatoid arthritis
     Dosage: 1000 MILLIGRAM
     Route: 042
  2. BIOTIN [Concomitant]
     Active Substance: BIOTIN
  3. COLLAGEN [Concomitant]
     Active Substance: COLLAGEN
  4. IRON [Concomitant]
     Active Substance: IRON
  5. MESTINON [Concomitant]
     Active Substance: PYRIDOSTIGMINE BROMIDE
  6. METHOTREXATE [Concomitant]
     Active Substance: METHOTREXATE
     Indication: Joint swelling
     Route: 048
  7. DOCONEXENT\ICOSAPENT [Concomitant]
     Active Substance: DOCONEXENT\ICOSAPENT
  8. PREDNISONE [Concomitant]
     Active Substance: PREDNISONE
  9. VITAMIN C [Concomitant]
     Active Substance: ASCORBIC ACID

REACTIONS (4)
  - Muscular weakness [Unknown]
  - Myasthenia gravis [Unknown]
  - Pain [Unknown]
  - Therapeutic response shortened [Unknown]
